FAERS Safety Report 6179784-0 (Version None)
Quarter: 2009Q2

REPORT INFORMATION
  Report Type: 
  Country: None (occurrence: None)
  Receive Date: 20090505
  Receipt Date: 20090424
  Transmission Date: 20091009
  Serious: Yes (Other)
  Sender: FDA-Public Use
  Company Number: US-PFIZER INC-2009206984

PATIENT
  Sex: Female
  Weight: 78.925 kg

DRUGS (3)
  1. CHANTIX [Suspect]
     Indication: SMOKING CESSATION THERAPY
     Dosage: 0.5 MG, 1X/DAY
     Dates: start: 20090401
  2. LEXAPRO [Concomitant]
     Dosage: UNK
  3. CLOZAPINE [Concomitant]
     Dosage: UNK

REACTIONS (4)
  - HEADACHE [None]
  - NECK PAIN [None]
  - PHARYNGEAL OEDEMA [None]
  - SLEEP DISORDER [None]
